FAERS Safety Report 17942354 (Version 1)
Quarter: 2020Q2

REPORT INFORMATION
  Report Type: Spontaneous
  Country: DE (occurrence: DE)
  Receive Date: 20200625
  Receipt Date: 20200625
  Transmission Date: 20200714
  Serious: Yes (Hospitalization)
  Sender: FDA-Public Use
  Company Number: DE-TEVA-2020-DE-1790473

PATIENT
  Age: 83 Year
  Sex: Male

DRUGS (7)
  1. FUROSEMID [Suspect]
     Active Substance: FUROSEMIDE
     Dosage: 40 MILLIGRAM DAILY; 1-0-0-0
     Route: 065
  2. HYDROCHLOROTHIAZID/VALSARTAN [Suspect]
     Active Substance: HYDROCHLOROTHIAZIDE\VALSARTAN
     Dosage: 1 DOSAGE FORMS DAILY; 12.5|160 MG, 1-0-0-0
     Route: 065
  3. XELEVIA 50MG [Suspect]
     Active Substance: SITAGLIPTIN PHOSPHATE
     Dosage: 50 MILLIGRAM DAILY; 1-0-0-0
     Route: 065
  4. ADENURIC 80MG [Concomitant]
     Dosage: 80 MILLIGRAM DAILY; 0-0-1-0
  5. BISOPROLOL [Concomitant]
     Active Substance: BISOPROLOL
     Dosage: 2.5 MILLIGRAM DAILY; 1-0-0-0
  6. ATORVASTATIN [Concomitant]
     Active Substance: ATORVASTATIN
     Dosage: 20 MILLIGRAM DAILY; 0-0-1-0
  7. VENLAFAXIN [Concomitant]
     Active Substance: VENLAFAXINE HYDROCHLORIDE
     Dosage: 37.5 MILLIGRAM DAILY; 1-0-0-0

REACTIONS (8)
  - Therapeutic drug monitoring analysis not performed [Unknown]
  - Electrolyte imbalance [Unknown]
  - Thirst [Unknown]
  - Pseudohyponatraemia [Unknown]
  - Hyperglycaemia [Unknown]
  - Polyuria [Unknown]
  - Dizziness [Unknown]
  - Fatigue [Unknown]
